FAERS Safety Report 8320188-X (Version None)
Quarter: 2012Q2

REPORT INFORMATION
  Report Type: 
  Country: None (occurrence: None)
  Receive Date: 20120430
  Receipt Date: 20120419
  Transmission Date: 20120825
  Serious: Yes (Hospitalization)
  Sender: FDA-Public Use
  Company Number: US-BIOGENIDEC-2012BI008717

PATIENT
  Age: 72 Year
  Sex: Male

DRUGS (2)
  1. AVONEX [Suspect]
     Indication: MULTIPLE SCLEROSIS
     Route: 030
  2. AVONEX [Suspect]
     Route: 030
     Dates: start: 20071201

REACTIONS (5)
  - PNEUMONIA [None]
  - INTESTINAL PERFORATION [None]
  - MYOCARDIAL INFARCTION [None]
  - INFECTION [None]
  - CARDIAC FAILURE CONGESTIVE [None]
